FAERS Safety Report 13995722 (Version 2)
Quarter: 2017Q3

REPORT INFORMATION
  Report Type: Spontaneous
  Country: US (occurrence: US)
  Receive Date: 20170921
  Receipt Date: 20170925
  Transmission Date: 20171128
  Serious: No
  Sender: FDA-Public Use
  Company Number: US-PFIZER INC-2017408308

PATIENT
  Age: 37 Year
  Sex: Female
  Weight: 66 kg

DRUGS (2)
  1. BUPIVACAINE HCL [Suspect]
     Active Substance: BUPIVACAINE HYDROCHLORIDE
     Indication: SPINAL ANAESTHESIA
     Dosage: 7.5 MG, UNK
     Dates: start: 20170917
  2. LIDOCAINE. [Concomitant]
     Active Substance: LIDOCAINE
     Dosage: 4.5 FOR DOSAGE

REACTIONS (1)
  - Drug ineffective [Unknown]

NARRATIVE: CASE EVENT DATE: 20170917
